FAERS Safety Report 5456473-9 (Version None)
Quarter: 2007Q3

REPORT INFORMATION
  Report Type: 
  Country: None (occurrence: None)
  Receive Date: 20070918
  Receipt Date: 20070910
  Transmission Date: 20080115
  Serious: Yes (Hospitalization)
  Sender: FDA-Public Use
  Company Number: US-ELI_LILLY_AND_COMPANY-US200708002517

PATIENT
  Age: 60 Year
  Sex: Male
  Weight: 90.249 kg

DRUGS (13)
  1. BYETTA [Suspect]
     Indication: TYPE 2 DIABETES MELLITUS
     Dosage: 5 UG, 2/D
     Route: 058
     Dates: start: 20070531, end: 20070719
  2. BYETTA [Suspect]
     Dosage: 10 UG, 2/D
     Route: 058
     Dates: start: 20070719
  3. AMARYL [Concomitant]
     Indication: TYPE 2 DIABETES MELLITUS
     Dosage: 2 MG, EACH MORNING
     Route: 048
  4. AMARYL [Concomitant]
     Dosage: 4 MG, EACH EVENING
  5. ACTOS [Concomitant]
     Indication: TYPE 2 DIABETES MELLITUS
     Dosage: 22.5 UNK, 2/D
  6. GLUCOPHAGE [Concomitant]
     Indication: DIABETES MELLITUS
     Dosage: 1 G, 4/D
     Dates: start: 20070101
  7. LORATADINE [Concomitant]
     Dosage: 10 MG, DAILY (1/D)
  8. LOPID [Concomitant]
     Dosage: 600 UNK, EACH EVENING
  9. COREG [Concomitant]
     Indication: CORONARY ARTERY DISEASE
     Dosage: 125 UNK, 2/D
  10. VYTORIN [Concomitant]
     Dosage: UNK D/F, EACH EVENING
  11. GLUCOSAMINE [Concomitant]
  12. ENTERIC ASPIRIN [Concomitant]
  13. OMEGA 3 [Concomitant]

REACTIONS (10)
  - BLOOD GLUCOSE DECREASED [None]
  - BLOOD GLUCOSE INCREASED [None]
  - DRUG INEFFECTIVE [None]
  - INJECTION SITE URTICARIA [None]
  - MALAISE [None]
  - NAUSEA [None]
  - OESOPHAGEAL SPASM [None]
  - PRESYNCOPE [None]
  - VOMITING [None]
  - WEIGHT DECREASED [None]
